FAERS Safety Report 7927854-6 (Version None)
Quarter: 2011Q4

REPORT INFORMATION
  Report Type: 
  Country: None (occurrence: None)
  Receive Date: 20111118
  Receipt Date: 20111118
  Transmission Date: 20120403
  Serious: Yes (Hospitalization)
  Sender: FDA-Public Use
  Company Number: None

PATIENT
  Sex: Female
  Weight: 94.347 kg

DRUGS (2)
  1. CHANTIX [Concomitant]
     Dosage: 1.0MG
     Route: 048
     Dates: start: 20110930, end: 20111103
  2. CHANTIX [Suspect]
     Indication: SMOKING CESSATION THERAPY
     Dosage: 0.5 MG
     Route: 048
     Dates: start: 20110922, end: 20110929

REACTIONS (2)
  - NERVOUS SYSTEM DISORDER [None]
  - MENTAL DISORDER [None]
